FAERS Safety Report 21385676 (Version 1)
Quarter: 2022Q3

REPORT INFORMATION
  Report Type: Other
  Country: DE (occurrence: DE)
  Receive Date: 20220928
  Receipt Date: 20220928
  Transmission Date: 20221027
  Serious: Yes (Hospitalization, Other)
  Sender: FDA-Public Use
  Company Number: DE-ADRED-06011-03

PATIENT

DRUGS (3)
  1. FINGOLIMOD HYDROCHLORIDE [Suspect]
     Active Substance: FINGOLIMOD HYDROCHLORIDE
     Indication: Product used for unknown indication
     Dosage: 0.5 MILLIGRAM, OD (0.5 MG, 1-0-0-0)
     Route: 065
  2. CHOLECALCIFEROL [Concomitant]
     Active Substance: CHOLECALCIFEROL
     Indication: Product used for unknown indication
     Dosage: 1000 INTERNATIONAL UNIT (1000 IE/TAG, 2-0-0-0)
     Route: 065
  3. TAMSULOSIN [Concomitant]
     Active Substance: TAMSULOSIN
     Indication: Product used for unknown indication
     Dosage: 0.4 MILLIGRAM, OD (0.4 MG, 0-0-1-0)
     Route: 065

REACTIONS (7)
  - Systemic infection [Unknown]
  - Pollakiuria [Unknown]
  - General physical health deterioration [Unknown]
  - Condition aggravated [Unknown]
  - Tachycardia [Unknown]
  - Dysuria [Unknown]
  - Pyrexia [Unknown]
